FAERS Safety Report 9046456 (Version 1)
Quarter: 2013Q1

REPORT INFORMATION
  Report Type: Spontaneous
  Country: US (occurrence: None)
  Receive Date: 20130128
  Receipt Date: 20130128
  Transmission Date: 20140127
  Serious: Yes (Life-Threatening, Hospitalization, Disabling)
  Sender: FDA-Public Use
  Company Number: None

PATIENT
  Age: 13 Year
  Sex: Male
  Weight: 49 kg

DRUGS (2)
  1. SEPTRA 160/800  UNKNOWN [Suspect]
     Indication: PRODUCT USED FOR UNKNOWN INDICATION
     Dosage: 160/800    BID   PO?04/15/2011  -  04/25/2001
     Route: 048
     Dates: start: 20110415, end: 20110425
  2. SEPTRA 160/800  UNKNOWN [Suspect]
     Indication: STREPTOCOCCUS TEST POSITIVE
     Dosage: 160/800    BID   PO?04/15/2011  -  04/25/2001
     Route: 048
     Dates: start: 20110415, end: 20110425

REACTIONS (4)
  - Convulsion [None]
  - Encephalitis [None]
  - Pyrexia [None]
  - Angioedema [None]
